FAERS Safety Report 16041194 (Version 1)
Quarter: 2019Q1

REPORT INFORMATION
  Report Type: Spontaneous
  Country: US (occurrence: US)
  Receive Date: 20190206
  Receipt Date: 20190206
  Transmission Date: 20190418
  Serious: Yes (Death)
  Sender: FDA-Public Use
  Company Number: None

PATIENT
  Age: 3 Year
  Sex: Female
  Weight: 13.5 kg

DRUGS (6)
  1. ONCASPAR [Suspect]
     Active Substance: PEGASPARGASE
     Dates: end: 20181111
  2. DEXAMETHASONE. [Suspect]
     Active Substance: DEXAMETHASONE
     Dates: end: 20181121
  3. DAUNORUBICIN [Suspect]
     Active Substance: DAUNORUBICIN
     Dates: end: 20181121
  4. CYTARABINE. [Suspect]
     Active Substance: CYTARABINE
     Dates: end: 20181119
  5. METHOTREXATE. [Suspect]
     Active Substance: METHOTREXATE
     Dates: end: 20181115
  6. VINCRISTINE SULFATE. [Suspect]
     Active Substance: VINCRISTINE SULFATE
     Dates: end: 20181121

REACTIONS (13)
  - Fatigue [None]
  - Abdominal pain [None]
  - Hypotension [None]
  - Cardiac arrest [None]
  - Lung infection [None]
  - Blood lactic acid increased [None]
  - Acidosis [None]
  - Nausea [None]
  - Heart rate increased [None]
  - Acute respiratory failure [None]
  - Hypoxia [None]
  - Vomiting [None]
  - Syncope [None]

NARRATIVE: CASE EVENT DATE: 20181122
